FAERS Safety Report 7265305-8 (Version None)
Quarter: 2011Q1

REPORT INFORMATION
  Report Type: 
  Country: None (occurrence: None)
  Receive Date: 20110131
  Receipt Date: 20110119
  Transmission Date: 20110831
  Serious: Yes (Death)
  Sender: FDA-Public Use
  Company Number: JP-SANOFI-AVENTIS-2011SA003726

PATIENT
  Age: 77 Year
  Sex: Female

DRUGS (4)
  1. 5-FU [Suspect]
     Route: 041
  2. CALCIUM LEVOFOLINATE [Suspect]
     Route: 041
  3. 5-FU [Suspect]
     Route: 040
  4. OXALIPLATIN [Suspect]

REACTIONS (1)
  - LARGE INTESTINE PERFORATION [None]
